FAERS Safety Report 19310807 (Version 2)
Quarter: 2021Q2

REPORT INFORMATION
  Report Type: Spontaneous
  Country: US (occurrence: US)
  Receive Date: 20210526
  Receipt Date: 20210603
  Transmission Date: 20210717
  Serious: No
  Sender: FDA-Public Use
  Company Number: US-ABBVIE-21K-163-3916617-00

PATIENT
  Sex: Female

DRUGS (3)
  1. ORILISSA [Suspect]
     Active Substance: ELAGOLIX SODIUM
     Dosage: HIGH DOSE
     Route: 048
     Dates: start: 2021
  2. ORILISSA [Suspect]
     Active Substance: ELAGOLIX SODIUM
     Dosage: LOW DOSE
     Route: 048
  3. ORILISSA [Suspect]
     Active Substance: ELAGOLIX SODIUM
     Indication: PRODUCT USED FOR UNKNOWN INDICATION
     Route: 048

REACTIONS (6)
  - Unevaluable event [Unknown]
  - Pain [Unknown]
  - Insulin resistance [Unknown]
  - Hormone level abnormal [Unknown]
  - Insomnia [Unknown]
  - Bladder disorder [Unknown]

NARRATIVE: CASE EVENT DATE: 2021
